FAERS Safety Report 17558414 (Version 2)
Quarter: 2020Q4

REPORT INFORMATION
  Report Type: Report from Study
  Country: US (occurrence: US)
  Receive Date: 20200318
  Receipt Date: 20201101
  Transmission Date: 20210113
  Serious: Yes (Death, Other)
  Sender: FDA-Public Use
  Company Number: NVSC2020US075683

PATIENT
  Age: 82 Year
  Sex: Male

DRUGS (3)
  1. FLUDARABINE [Concomitant]
     Active Substance: FLUDARABINE PHOSPHATE
     Indication: CHEMOTHERAPY
     Dosage: UNK
     Route: 065
  2. KYMRIAH [Suspect]
     Active Substance: TISAGENLECLEUCEL
     Indication: DIFFUSE LARGE B-CELL LYMPHOMA
     Dosage: UNK
     Route: 065
     Dates: start: 20190923
  3. CYCLOPHOSPHAMIDE. [Concomitant]
     Active Substance: CYCLOPHOSPHAMIDE
     Indication: CHEMOTHERAPY
     Dosage: UNK
     Route: 065

REACTIONS (13)
  - Cytokine release syndrome [Recovered/Resolved]
  - Cytomegalovirus infection [Unknown]
  - Haematocrit decreased [Unknown]
  - Neurotoxicity [Recovered/Resolved]
  - Haemoglobin decreased [Unknown]
  - Rhinovirus infection [Unknown]
  - Pyrexia [Unknown]
  - Diffuse large B-cell lymphoma recurrent [Fatal]
  - Lymphocyte count decreased [Unknown]
  - Malignant neoplasm progression [Fatal]
  - Depressed level of consciousness [Unknown]
  - Diffuse large B-cell lymphoma [Fatal]
  - Platelet count decreased [Unknown]
